FAERS Safety Report 6802563-5 (Version None)
Quarter: 2010Q2

REPORT INFORMATION
  Report Type: 
  Country: None (occurrence: None)
  Receive Date: 20100629
  Receipt Date: 20090616
  Transmission Date: 20101027
  Serious: No
  Sender: FDA-Public Use
  Company Number: US-PFIZER INC-2005010346

PATIENT
  Sex: Male
  Weight: 72.6 kg

DRUGS (5)
  1. VIAGRA [Suspect]
     Indication: ERECTILE DYSFUNCTION
     Dosage: 50 MG, AS NEEDED
     Route: 048
  2. WARFARIN [Concomitant]
     Route: 048
  3. BRIMONIDINE TARTRATE [Concomitant]
     Route: 047
  4. LATANOPROST [Concomitant]
     Route: 047
  5. COSOPT [Concomitant]
     Route: 047

REACTIONS (1)
  - ERECTILE DYSFUNCTION [None]
